FAERS Safety Report 7903684-6 (Version None)
Quarter: 2011Q4

REPORT INFORMATION
  Report Type: 
  Country: None (occurrence: None)
  Receive Date: 20111109
  Receipt Date: 20111028
  Transmission Date: 20120403
  Serious: Yes (Hospitalization)
  Sender: FDA-Public Use
  Company Number: JP-SANOFI-AVENTIS-2011SA072138

PATIENT
  Age: 68 Year
  Sex: Male
  Weight: 67 kg

DRUGS (15)
  1. CLOPIDOGREL BISULFATE [Suspect]
     Route: 065
     Dates: start: 20081117
  2. ASPIRIN [Concomitant]
     Route: 048
     Dates: start: 20081116
  3. LASIX [Concomitant]
     Dates: start: 20081116, end: 20081116
  4. SIGMART [Concomitant]
     Dates: start: 20081116, end: 20081116
  5. RABEPRAZOLE SODIUM [Concomitant]
     Route: 048
     Dates: start: 20081116
  6. FOROCYLE S [Concomitant]
     Dates: start: 20081116, end: 20081117
  7. CLOPIDOGREL BISULFATE [Suspect]
     Route: 065
     Dates: start: 20081116, end: 20081116
  8. SENNOSIDE A [Concomitant]
     Route: 048
     Dates: start: 20081128
  9. ZANTAC [Concomitant]
     Dates: start: 20081116, end: 20081116
  10. SIGMART [Concomitant]
     Route: 048
     Dates: start: 20081116
  11. LASIX [Concomitant]
     Route: 048
     Dates: start: 20081119, end: 20081119
  12. HEPARIN [Concomitant]
     Dosage: DOSE:12000 UNIT(S)
     Route: 042
     Dates: start: 20081116, end: 20081117
  13. CRESTOR [Concomitant]
     Route: 048
     Dates: start: 20081116
  14. QUINAPRIL HCL [Concomitant]
     Route: 048
     Dates: start: 20081116
  15. PANTOSIN [Concomitant]
     Route: 048
     Dates: start: 20081121

REACTIONS (2)
  - ARTERIAL RESTENOSIS [None]
  - DRUG INEFFECTIVE [None]
